FAERS Safety Report 8936425 (Version 2)
Quarter: 2013Q1

REPORT INFORMATION
  Report Type: Spontaneous
  Country: CO (occurrence: CO)
  Receive Date: 20121130
  Receipt Date: 20130101
  Transmission Date: 20140127
  Serious: Yes (Other)
  Sender: FDA-Public Use
  Company Number: CO-ROCHE-1160970

PATIENT
  Age: 79 Year
  Sex: Male
  Weight: 62 kg

DRUGS (9)
  1. LUCENTIS [Suspect]
     Indication: EYE DISORDER
     Route: 050
     Dates: start: 20111110
  2. METOPROLOL [Concomitant]
  3. GLIBENCLAMIDE [Concomitant]
  4. ACETYLSALICYLIC ACID [Concomitant]
  5. AMLODIPINE [Concomitant]
  6. HYDROCHLOROTHIAZIDE [Concomitant]
  7. LOSARTAN [Concomitant]
  8. METFORMIN [Concomitant]
  9. ATORVASTATIN [Concomitant]

REACTIONS (1)
  - Blindness unilateral [Unknown]
